FAERS Safety Report 10833307 (Version 1)
Quarter: 2015Q1

REPORT INFORMATION
  Report Type: Spontaneous
  Country: US (occurrence: US)
  Receive Date: 20150219
  Receipt Date: 20150219
  Transmission Date: 20150721
  Serious: No
  Sender: FDA-Public Use
  Company Number: US-RECKITT BENCKISER PHARMACEUTICAL, INC-RB-64828-2014

PATIENT

DRUGS (1)
  1. SUBOXONE [Suspect]
     Active Substance: BUPRENORPHINE HYDROCHLORIDE\NALOXONE HYDROCHLORIDE
     Indication: PRODUCT USED FOR UNKNOWN INDICATION
     Dosage: SUBOXONE TABLET. DOSING DETAILS UNKNOWN.
     Route: 065

REACTIONS (8)
  - Nausea [Unknown]
  - Delirium tremens [Unknown]
  - Chills [Unknown]
  - Diarrhoea [Unknown]
  - Substance abuse [Unknown]
  - Feeling abnormal [Unknown]
  - Anxiety [Unknown]
  - Disturbance in attention [Unknown]
